FAERS Safety Report 4756494-5 (Version None)
Quarter: 2005Q3

REPORT INFORMATION
  Report Type: 
  Country: None (occurrence: None)
  Receive Date: 20050830
  Receipt Date: 20050714
  Transmission Date: 20060218
  Serious: No
  Sender: FDA-Public Use
  Company Number: US-GLAXOSMITHKLINE-A0566211A

PATIENT
  Age: 55 Year
  Sex: Female

DRUGS (9)
  1. WELLBUTRIN XL [Suspect]
     Indication: DEPRESSION
     Dosage: 150MG PER DAY
     Route: 048
     Dates: start: 20050710
  2. ESTRACE [Concomitant]
  3. PROVERA [Concomitant]
  4. PREVACID [Concomitant]
  5. LIPITOR [Concomitant]
  6. LEVOXYL [Concomitant]
  7. FIBERCON [Concomitant]
  8. ALKA SELTZER PLUS [Concomitant]
  9. ADVIL [Concomitant]

REACTIONS (3)
  - DIZZINESS [None]
  - INSOMNIA [None]
  - NAUSEA [None]
